FAERS Safety Report 5090935-1 (Version None)
Quarter: 2006Q3

REPORT INFORMATION
  Report Type: 
  Country: None (occurrence: None)
  Receive Date: 20060823
  Receipt Date: 20060808
  Transmission Date: 20061208
  Serious: Yes (Other)
  Sender: FDA-Public Use
  Company Number: US-2005-022935

PATIENT
  Age: 50 Year
  Sex: Male

DRUGS (4)
  1. BETASERON [Suspect]
     Indication: RELAPSING-REMITTING MULTIPLE SCLEROSIS
     Dosage: 8 MIU, EVERY 2D, SUBCUTANEOUS
     Route: 058
     Dates: start: 20041103
  2. METFORMIN (METFORMIN) [Concomitant]
  3. PRINIVIL [Concomitant]
  4. TYLENOL [Concomitant]

REACTIONS (1)
  - NEOPLASM PROGRESSION [None]
